FAERS Safety Report 18251545 (Version 1)
Quarter: 2020Q3

REPORT INFORMATION
  Report Type: Spontaneous
  Country: IT (occurrence: IT)
  Receive Date: 20200910
  Receipt Date: 20200910
  Transmission Date: 20201103
  Serious: Yes (Hospitalization)
  Sender: FDA-Public Use
  Company Number: IT-TEVA-2020-IT-1824630

PATIENT
  Age: 43 Year
  Sex: Female

DRUGS (11)
  1. MORPHINE [Suspect]
     Active Substance: MORPHINE
     Indication: HEADACHE
     Dosage: DRIP; STARTED AT THE AGE OF 20 YEARS
     Route: 065
  2. TOPIRAMATE. [Suspect]
     Active Substance: TOPIRAMATE
     Indication: HEADACHE
     Dosage: STARTED AT THE AGE OF 27 YEARS
     Route: 065
  3. INDOMETHACIN. [Suspect]
     Active Substance: INDOMETHACIN
     Indication: HEADACHE
     Dosage: STARTED AT THE AGE OF 20 YEARS
     Route: 065
  4. OXYCODONE/PARACETAMOL [Suspect]
     Active Substance: ACETAMINOPHEN\OXYCODONE HYDROCHLORIDE
     Indication: HEADACHE
     Dosage: STARTED AT THE AGE OF 27 YEARS
     Route: 065
  5. MORPHINE [Suspect]
     Active Substance: MORPHINE
     Indication: HEADACHE
     Dosage: STARTED AT THE AGE OF 33?34 YEARS
     Route: 065
  6. NOVALGINA [Suspect]
     Active Substance: METAMIZOLE SODIUM
     Indication: HEADACHE
     Dosage: STARTED AT THE AGE OF 4 YEARS
     Route: 065
  7. PARACETAMOL/CODEINE [Suspect]
     Active Substance: ACETAMINOPHEN\CODEINE PHOSPHATE
     Indication: HEADACHE
     Dosage: STARTED AT THE AGE OF 33?34 YEARS; UP TO 20 TABLETS PER DAY
     Route: 065
  8. INDOMETHACIN MEGLUMINE. [Suspect]
     Active Substance: INDOMETHACIN MEGLUMINE
     Indication: HEADACHE
     Route: 030
  9. PARACETAMOL/CODEINE [Suspect]
     Active Substance: ACETAMINOPHEN\CODEINE PHOSPHATE
     Indication: HEADACHE
     Dosage: STARTED AT THE AGE OF 27 YEARS
     Route: 065
  10. OXYCODONE/PARACETAMOL [Suspect]
     Active Substance: ACETAMINOPHEN\OXYCODONE HYDROCHLORIDE
     Indication: HEADACHE
     Dosage: STARTED AT THE AGE OF 35 YEARS; UP TO 40 TABLETS PER DAY
     Route: 065
  11. FENTANYL. [Suspect]
     Active Substance: FENTANYL
     Indication: HEADACHE
     Dosage: STARTED AT THE AGE OF 40?43 YEARS
     Route: 065

REACTIONS (5)
  - Duodenal ulcer [Unknown]
  - Gastric ulcer [Unknown]
  - Gastric haemorrhage [Unknown]
  - Intentional overdose [Unknown]
  - Intentional product misuse [Unknown]
